FAERS Safety Report 21391392 (Version 1)
Quarter: 2022Q3

REPORT INFORMATION
  Report Type: Spontaneous
  Country: US (occurrence: US)
  Receive Date: 20220929
  Receipt Date: 20220929
  Transmission Date: 20221026
  Serious: Yes (Other)
  Sender: FDA-Public Use
  Company Number: US-ALKERMES INC.-ALK-2022-004660

PATIENT
  Sex: Female
  Weight: 53.061 kg

DRUGS (2)
  1. VIVITROL [Suspect]
     Active Substance: NALTREXONE
     Indication: Alcoholism
     Dosage: 380 MILLIGRAM, QMO
     Route: 030
     Dates: start: 20220629, end: 202207
  2. UNSPECIFIED INGREDIENT [Concomitant]
     Active Substance: UNSPECIFIED INGREDIENT
     Dosage: UNK
     Route: 065

REACTIONS (7)
  - Diabetes mellitus [Unknown]
  - Sepsis [Recovered/Resolved]
  - Staphylococcal infection [Recovered/Resolved]
  - Pneumonia [Recovered/Resolved]
  - Malnutrition [Recovered/Resolved]
  - Dehydration [Recovered/Resolved]
  - Treatment noncompliance [Not Recovered/Not Resolved]

NARRATIVE: CASE EVENT DATE: 20220101
